FAERS Safety Report 12706720 (Version 3)
Quarter: 2016Q4

REPORT INFORMATION
  Report Type: Report from Study
  Country: US (occurrence: US)
  Receive Date: 20160901
  Receipt Date: 20161110
  Transmission Date: 20170207
  Serious: No
  Sender: FDA-Public Use
  Company Number: PHEH2016US022015

PATIENT
  Sex: Female

DRUGS (4)
  1. EXTAVIA [Suspect]
     Active Substance: INTERFERON BETA-1B
     Dosage: WEEKS 3-4: 0.5 ML (0.125 MG), QOD
     Route: 058
  2. EXTAVIA [Suspect]
     Active Substance: INTERFERON BETA-1B
     Dosage: WEEKS 5-6: 0.75 ML (0.1875 MG), QOD
     Route: 058
  3. EXTAVIA [Suspect]
     Active Substance: INTERFERON BETA-1B
     Dosage: WEEKS 7PLUS: 1 ML (0.25 MG), QOD
     Route: 058
     Dates: end: 20161021
  4. EXTAVIA [Suspect]
     Active Substance: INTERFERON BETA-1B
     Indication: MULTIPLE SCLEROSIS
     Dosage: WEEKS 1-2: 0.25 ML (0.0625 MG), QOD
     Route: 058
     Dates: start: 20160803

REACTIONS (2)
  - Insomnia [Recovering/Resolving]
  - Hepatic enzyme increased [Not Recovered/Not Resolved]
